FAERS Safety Report 10656398 (Version 6)
Quarter: 2015Q1

REPORT INFORMATION
  Report Type: Spontaneous
  Country: GB (occurrence: GB)
  Receive Date: 20141216
  Receipt Date: 20150313
  Transmission Date: 20150720
  Serious: Yes (Disabling, Other)
  Sender: FDA-Public Use
  Company Number: GB-MYLANLABS-2014M1009886

PATIENT

DRUGS (3)
  1. OMEPRAZOLE 20 MG CAPSULES [Suspect]
     Active Substance: OMEPRAZOLE
     Indication: GASTROOESOPHAGEAL REFLUX DISEASE
     Dosage: 20 MG, UNK
     Route: 048
     Dates: end: 20141203
  2. OMEPRAZOLE 20 MG CAPSULES [Suspect]
     Active Substance: OMEPRAZOLE
     Dosage: 40 MG, UNK
  3. LEVOTHYROXINE [Concomitant]
     Active Substance: LEVOTHYROXINE
     Indication: HYPOTHYROIDISM
     Dosage: UNK

REACTIONS (14)
  - Hepatic neoplasm [Not Recovered/Not Resolved]
  - Throat tightness [Unknown]
  - Malaise [Unknown]
  - Gait disturbance [Unknown]
  - Feeling abnormal [Unknown]
  - Gastrooesophageal reflux disease [Unknown]
  - Chest pain [Not Recovered/Not Resolved]
  - Dyspepsia [Unknown]
  - Weight decreased [Unknown]
  - Abdominal pain [Unknown]
  - Dysgeusia [Unknown]
  - Oropharyngeal pain [Not Recovered/Not Resolved]
  - Dry throat [Unknown]
  - Nausea [Unknown]

NARRATIVE: CASE EVENT DATE: 20141203
